FAERS Safety Report 6046045-X (Version None)
Quarter: 2009Q1

REPORT INFORMATION
  Report Type: 
  Country: None (occurrence: None)
  Receive Date: 20090116
  Receipt Date: 20090113
  Transmission Date: 20090719
  Serious: Yes (Hospitalization, Other)
  Sender: FDA-Public Use
  Company Number: CERZ-1000411

PATIENT
  Age: 9 Year
  Sex: Male

DRUGS (2)
  1. CEREZYME [Suspect]
     Indication: GAUCHER'S DISEASE
     Dosage: 60 U/KG, Q2W, INTRAVENOUS
     Route: 042
     Dates: start: 20001031
  2. ALDACTONE [Concomitant]

REACTIONS (24)
  - ACTINOMYCOSIS [None]
  - CLOSTRIDIAL INFECTION [None]
  - DEHYDRATION [None]
  - DIARRHOEA [None]
  - FALL [None]
  - FRACTURE [None]
  - GIARDIASIS [None]
  - HYPOALBUMINAEMIA [None]
  - HYPOCALCAEMIA [None]
  - HYPONATRAEMIA [None]
  - HYPOTENSION [None]
  - JUGULAR VEIN THROMBOSIS [None]
  - LUNG NEOPLASM [None]
  - LYMPHADENOPATHY [None]
  - MENTAL STATUS CHANGES [None]
  - OSTEITIS [None]
  - OSTEOMYELITIS [None]
  - PNEUMONIA [None]
  - POSTOPERATIVE ILEUS [None]
  - PROTEIN-LOSING GASTROENTEROPATHY [None]
  - ROAD TRAFFIC ACCIDENT [None]
  - STREPTOCOCCAL SEPSIS [None]
  - SUBCLAVIAN VEIN THROMBOSIS [None]
  - VOMITING [None]
